FAERS Safety Report 25239130 (Version 1)
Quarter: 2025Q2

REPORT INFORMATION
  Report Type: Other
  Country: IN (occurrence: IN)
  Receive Date: 20250425
  Receipt Date: 20250425
  Transmission Date: 20250717
  Serious: Yes (Death, Hospitalization)
  Sender: ANI
  Company Number: IN-ANIPHARMA-022491

PATIENT
  Age: 61 Year
  Sex: Female

DRUGS (5)
  1. LEUCOVORIN [Suspect]
     Active Substance: LEUCOVORIN\LEUCOVORIN CALCIUM
     Indication: Toxic epidermal necrolysis
  2. Atorvastatin/Aspirin [Concomitant]
     Indication: Cerebrovascular accident
  3. TELMISARTAN [Concomitant]
     Active Substance: TELMISARTAN
     Indication: Hypertension
  4. FOLIC ACID [Concomitant]
     Active Substance: FOLIC ACID
     Indication: Supplementation therapy
  5. TELMISARTAN [Concomitant]
     Active Substance: TELMISARTAN
     Indication: Chronic kidney disease

REACTIONS (1)
  - Drug ineffective [Fatal]
